FAERS Safety Report 14277142 (Version 1)
Quarter: 2017Q4

REPORT INFORMATION
  Report Type: Spontaneous
  Country: US (occurrence: US)
  Receive Date: 20171212
  Receipt Date: 20171212
  Transmission Date: 20180321
  Serious: Yes (Hospitalization, Other)
  Sender: FDA-Public Use
  Company Number: US-AUROBINDO-AUR-APL-2017-45029

PATIENT
  Age: 58 Year
  Sex: Female

DRUGS (11)
  1. VENLAFAXINE [Suspect]
     Active Substance: VENLAFAXINE HYDROCHLORIDE
     Indication: DEPRESSION
     Dosage: 75 MG, TWO TIMES A DAY
     Route: 048
  2. LACTULOSE. [Concomitant]
     Active Substance: LACTULOSE
     Indication: PRODUCT USED FOR UNKNOWN INDICATION
     Dosage: 10 G, 3 TIMES A DAY
     Route: 048
  3. AMITRIPTYLINE [Suspect]
     Active Substance: AMITRIPTYLINE
     Indication: NECK PAIN
     Dosage: 3 TO 4 TIMES DAILY AS NEEDED () ; AS NECESSARY
  4. BACLOFEN. [Suspect]
     Active Substance: BACLOFEN
     Dosage: 8 TIMES DAILY ON HER NECK AND IN HER MOUTH ()
  5. DICLOFENAC [Suspect]
     Active Substance: DICLOFENAC
     Dosage: 8 TIMES DAILY ON HER NECK AND IN HER MOUTH ()UNK
  6. LIDOCAINE. [Concomitant]
     Active Substance: LIDOCAINE
     Indication: MOUTH ULCERATION
     Dosage: ()
     Route: 061
  7. PANTOPRAZOLE [Concomitant]
     Active Substance: PANTOPRAZOLE
     Indication: PRODUCT USED FOR UNKNOWN INDICATION
     Dosage: 40 MG, EVERY MORNING
     Route: 048
  8. RIFAXIMIN. [Concomitant]
     Active Substance: RIFAXIMIN
     Indication: PRODUCT USED FOR UNKNOWN INDICATION
     Dosage: 550 MG, TWO TIMES A DAY
     Route: 048
  9. DICLOFENAC [Suspect]
     Active Substance: DICLOFENAC
     Indication: NECK PAIN
     Dosage: 3 TO 4 TIMES DAILY AS NEEDED () ; AS NECESSARY
  10. AMITRIPTYLINE [Suspect]
     Active Substance: AMITRIPTYLINE
     Dosage: 8 TIMES DAILY ON HER NECK AND IN HER MOUTH
  11. BACLOFEN. [Suspect]
     Active Substance: BACLOFEN
     Indication: NECK PAIN
     Dosage: 3 TO 4 TIMES DAILY AS NEEDED () ; AS NECESSARY

REACTIONS (3)
  - Serotonin syndrome [Recovered/Resolved]
  - Intentional product misuse [Unknown]
  - Incorrect route of drug administration [Unknown]
